FAERS Safety Report 9912755 (Version 1)
Quarter: 2014Q1

REPORT INFORMATION
  Report Type: Spontaneous
  Country: US (occurrence: US)
  Receive Date: 20140220
  Receipt Date: 20140220
  Transmission Date: 20141002
  Serious: No
  Sender: FDA-Public Use
  Company Number: US-PFIZER INC-2014046498

PATIENT
  Age: 62 Year
  Sex: Female

DRUGS (15)
  1. XELJANZ [Suspect]
     Indication: RHEUMATOID ARTHRITIS
     Dosage: 5 MG, 2X/DAY
     Route: 048
     Dates: start: 20140206
  2. NEURONTIN [Concomitant]
  3. DILAUDID [Concomitant]
  4. RELISTOR [Concomitant]
  5. FUROSEMIDE [Concomitant]
  6. PRILOSEC [Concomitant]
  7. PROVIGIL [Concomitant]
  8. WELLBUTRIN [Concomitant]
  9. XANAX [Concomitant]
  10. AMBIEN [Concomitant]
  11. MEDROL [Concomitant]
  12. ZANTAC [Concomitant]
  13. ARAVA [Concomitant]
  14. HYTRIN [Concomitant]
     Dosage: UNK
  15. MULTIVITAMINS [Concomitant]

REACTIONS (3)
  - Cough [Unknown]
  - Fatigue [Unknown]
  - Nasal congestion [Unknown]
